FAERS Safety Report 8188068-0 (Version None)
Quarter: 2012Q1

REPORT INFORMATION
  Report Type: 
  Country: None (occurrence: None)
  Receive Date: 20120306
  Receipt Date: 20120228
  Transmission Date: 20120608
  Serious: Yes (Other)
  Sender: FDA-Public Use
  Company Number: CH-PFIZER INC-2012034321

PATIENT
  Age: 68 Year
  Sex: Male
  Weight: 140 kg

DRUGS (7)
  1. PANTOPRAZOLE [Concomitant]
     Dosage: 40 MG; 1-0-0
     Dates: end: 20111201
  2. POTASSIUM CHLORIDE [Concomitant]
     Dosage: 1-1-1
     Dates: end: 20111201
  3. VITAMIN D [Concomitant]
     Dosage: 40-0-0
     Dates: end: 20111201
  4. BISOPROLOL FUMARATE [Concomitant]
     Dosage: 2.5 MG; 1-0-0
     Dates: end: 20111201
  5. CORDARONE [Suspect]
     Indication: ATRIAL FIBRILLATION
     Dosage: 200 MG, 1X/DAY
     Route: 048
     Dates: end: 20111208
  6. CORDARONE [Suspect]
     Indication: ATRIAL FLUTTER
  7. ATACAND [Concomitant]
     Dosage: 8 MG
     Dates: end: 20111201

REACTIONS (4)
  - VENTRICULAR FIBRILLATION [None]
  - VENTRICULAR TACHYCARDIA [None]
  - PULMONARY FIBROSIS [None]
  - ATRIAL FIBRILLATION [None]
